FAERS Safety Report 9343918 (Version 4)
Quarter: 2014Q1

REPORT INFORMATION
  Report Type: Spontaneous
  Country: US (occurrence: US)
  Receive Date: 20130612
  Receipt Date: 20140205
  Transmission Date: 20141002
  Serious: Yes (Hospitalization, Disabling)
  Sender: FDA-Public Use
  Company Number: US-BAYER-2013-072055

PATIENT
  Age: 38 Year
  Sex: Female
  Weight: 66 kg

DRUGS (10)
  1. YAZ [Suspect]
     Indication: ACNE
     Dosage: UNK
     Dates: end: 201211
  2. YAZ [Suspect]
     Indication: PREMENSTRUAL SYNDROME
     Dosage: UNK
     Dates: start: 200802, end: 200805
  3. YASMIN [Suspect]
     Dosage: UNK
     Dates: start: 2005, end: 2005
  4. DILANTIN [Concomitant]
     Indication: CONVULSION
  5. MEDROL [METHYLPREDNISOLONE] [Concomitant]
     Dosage: UNK
     Dates: start: 20080310
  6. MOBIC [Concomitant]
     Dosage: UNK
     Dates: start: 20080310
  7. MOTRIN [Concomitant]
     Dosage: UNK
     Dates: start: 20080527
  8. LORATAB [Concomitant]
  9. DURAFLU [Concomitant]
  10. TESSALON PERLE [Concomitant]

REACTIONS (10)
  - Pulmonary embolism [None]
  - Pulmonary embolism [None]
  - Deep vein thrombosis [None]
  - Thrombophlebitis superficial [None]
  - Injury [None]
  - Pain [None]
  - Anxiety [None]
  - Anhedonia [None]
  - Pain [None]
  - Mental disorder [None]
